FAERS Safety Report 9721366 (Version 2)
Quarter: 2013Q4

REPORT INFORMATION
  Report Type: Spontaneous
  Country: US (occurrence: US)
  Receive Date: 20131129
  Receipt Date: 20131203
  Transmission Date: 20140711
  Serious: No
  Sender: FDA-Public Use
  Company Number: US-PFIZER INC-2013340270

PATIENT
  Age: 63 Year
  Sex: Male
  Weight: 86.17 kg

DRUGS (2)
  1. CELEBREX [Suspect]
     Indication: KNEE ARTHROPLASTY
     Dosage: 200 MG, 2X/DAY
     Dates: start: 20131121, end: 20131122
  2. LORCET [Concomitant]
     Indication: PAIN
     Dosage: 10/650 MG, 2X/DAY

REACTIONS (3)
  - Dizziness [Recovered/Resolved]
  - Anxiety [Recovered/Resolved]
  - Feeling abnormal [Recovered/Resolved]
